FAERS Safety Report 20941215 (Version 1)
Quarter: 2022Q2

REPORT INFORMATION
  Report Type: Spontaneous
  Country: US (occurrence: US)
  Receive Date: 20220609
  Receipt Date: 20220609
  Transmission Date: 20220721
  Serious: No
  Sender: FDA-Public Use
  Company Number: US-RIGEL PHARMACEUTICALS, INC.-2022FOS000130

PATIENT
  Age: 37 Year
  Sex: Female

DRUGS (1)
  1. TAVALISSE [Suspect]
     Active Substance: FOSTAMATINIB
     Indication: Acute myeloid leukaemia
     Dosage: 100 MG, BID
     Route: 048
     Dates: start: 20211116

REACTIONS (5)
  - Platelet count increased [Unknown]
  - Insurance issue [Unknown]
  - Constipation [Unknown]
  - Product dose omission issue [Unknown]
  - Off label use [Unknown]

NARRATIVE: CASE EVENT DATE: 20211116
